FAERS Safety Report 20105482 (Version 1)
Quarter: 2021Q4

REPORT INFORMATION
  Report Type: Report from Study
  Country: KR (occurrence: KR)
  Receive Date: 20211124
  Receipt Date: 20211124
  Transmission Date: 20220303
  Serious: Yes (Life-Threatening, Hospitalization)
  Sender: FDA-Public Use
  Company Number: KR-CELLTRION INC.-2021KR015800

PATIENT

DRUGS (102)
  1. TRUXIMA [Suspect]
     Active Substance: RITUXIMAB-ABBS
     Indication: Chemotherapy
     Dosage: C1D1, 8, 15: 375 MG/M2 (100 MG/VIAL) Q 3 WEEKS
     Route: 042
     Dates: start: 20201110
  2. TRUXIMA [Suspect]
     Active Substance: RITUXIMAB-ABBS
     Indication: Central nervous system lymphoma
     Dosage: C1D15: 375 MG/M2 EVERY 3 WEEKS
     Route: 042
  3. TRUXIMA [Suspect]
     Active Substance: RITUXIMAB-ABBS
     Dosage: C2-6D1: 375 MG/M2 Q 3 WEEKS
     Route: 042
     Dates: start: 20201228
  4. TRUXIMA [Suspect]
     Active Substance: RITUXIMAB-ABBS
     Dosage: 611 MG D1, 8, 15 (Q3WEEKS) (100 MG VIAL)
     Route: 042
     Dates: start: 20210107
  5. TRUXIMA [Suspect]
     Active Substance: RITUXIMAB-ABBS
     Dosage: C1D1: 375 MG/M2 (611.25 MG)
     Route: 042
     Dates: start: 20210107
  6. TRUXIMA [Suspect]
     Active Substance: RITUXIMAB-ABBS
     Dosage: C1D8: 375 MG/M2 (611.25 MG)
     Route: 042
     Dates: start: 20210107
  7. TRUXIMA [Suspect]
     Active Substance: RITUXIMAB-ABBS
     Dosage: C1D15: 375 MG/M2 (611.25 MG)
     Route: 042
     Dates: start: 20210107
  8. TRUXIMA [Suspect]
     Active Substance: RITUXIMAB-ABBS
     Dosage: (100 MG/VIAL C1D15) IP WAS RESTARTED WITHOUT DOSE REDUCTION
     Dates: start: 20210122
  9. TRUXIMA [Suspect]
     Active Substance: RITUXIMAB-ABBS
     Dosage: 611 MG D1 (Q3WEEKS) (100 MG VIAL)
     Route: 042
     Dates: start: 20210204
  10. TRUXIMA [Suspect]
     Active Substance: RITUXIMAB-ABBS
     Dosage: 611 MG D1 (Q3WEEKS) (500 MG VIAL)
     Route: 042
     Dates: start: 20210204
  11. TRUXIMA [Suspect]
     Active Substance: RITUXIMAB-ABBS
     Dosage: 611 MG D1 (Q3WEEKS) (100 MG VIAL)
     Route: 042
     Dates: start: 20210302
  12. TRUXIMA [Suspect]
     Active Substance: RITUXIMAB-ABBS
     Dosage: 611 MG D1 (Q3WEEKS) (500 MG VIAL)
     Route: 042
     Dates: start: 20210302
  13. TRUXIMA [Suspect]
     Active Substance: RITUXIMAB-ABBS
     Dosage: 611 MG D1 (Q3WEEKS) (100 MG VIAL)
     Route: 042
     Dates: start: 20210323
  14. TRUXIMA [Suspect]
     Active Substance: RITUXIMAB-ABBS
     Dosage: 611 MG D1 (Q3WEEKS) (500 MG VIAL)
     Route: 042
     Dates: start: 20210323
  15. TRUXIMA [Suspect]
     Active Substance: RITUXIMAB-ABBS
     Dosage: 611 MG D1 (Q3WEEKS) (100 MG VIAL)
     Route: 042
     Dates: start: 20210413
  16. TRUXIMA [Suspect]
     Active Substance: RITUXIMAB-ABBS
     Dosage: 611 MG D1 (Q3WEEKS) (500 MG VIAL)
     Route: 042
     Dates: start: 20210413
  17. TRUXIMA [Suspect]
     Active Substance: RITUXIMAB-ABBS
     Dosage: 611 MG D1 (Q3WEEKS) (500 MG VIAL)
     Route: 042
     Dates: start: 20210504
  18. TRUXIMA [Suspect]
     Active Substance: RITUXIMAB-ABBS
     Dosage: INDUCTION REGIMEN (0, 2, 6 WEEKS) - NOT GIVEN ; FREQUENCY: 3 WEEKS
     Route: 042
     Dates: start: 20210107, end: 20210504
  19. ETOPOSIDE [Suspect]
     Active Substance: ETOPOSIDE
     Indication: Chemotherapy
     Dosage: UNK
     Dates: start: 20210107, end: 20210504
  20. ETOPOSIDE [Suspect]
     Active Substance: ETOPOSIDE
     Indication: Central nervous system lymphoma
  21. IBRUTINIB [Suspect]
     Active Substance: IBRUTINIB
     Indication: Chemotherapy
     Dosage: 560 MG (D1-21)
     Route: 048
     Dates: start: 20210107, end: 20210504
  22. IBRUTINIB [Suspect]
     Active Substance: IBRUTINIB
     Indication: Central nervous system lymphoma
     Dosage: MAINTENANCE #1
     Dates: start: 20210610
  23. IBRUTINIB [Suspect]
     Active Substance: IBRUTINIB
     Dosage: RESTARTED THERAPY
     Dates: start: 20210707
  24. IBRUTINIB [Suspect]
     Active Substance: IBRUTINIB
     Dosage: MAINTENANCE #4
     Route: 042
     Dates: start: 20210107, end: 20210504
  25. IFOSFAMIDE [Suspect]
     Active Substance: IFOSFAMIDE
     Indication: Chemotherapy
     Dosage: UNK
     Dates: start: 20210107, end: 20210504
  26. IFOSFAMIDE [Suspect]
     Active Substance: IFOSFAMIDE
     Indication: Central nervous system lymphoma
  27. METHOTREXATE [Suspect]
     Active Substance: METHOTREXATE
     Indication: Product used for unknown indication
     Dosage: UNK
     Dates: start: 20200901
  28. ACYCLOVIR [Concomitant]
     Active Substance: ACYCLOVIR
     Indication: Antibiotic prophylaxis
     Dosage: 200 MG, BID
     Route: 048
     Dates: start: 20210107, end: 20210610
  29. ACYCLOVIR [Concomitant]
     Active Substance: ACYCLOVIR
     Indication: Prophylaxis
     Dosage: 200 MG, QD
     Route: 048
     Dates: start: 20210107, end: 20210610
  30. ACYCLOVIR [Concomitant]
     Active Substance: ACYCLOVIR
     Indication: Herpes zoster
  31. ALOXI [Concomitant]
     Active Substance: PALONOSETRON HYDROCHLORIDE
     Indication: Premedication
     Dosage: 0.25 MG, PRN
     Route: 042
     Dates: start: 20210107, end: 20210504
  32. ASPIRIN [Concomitant]
     Active Substance: ASPIRIN
     Indication: Prophylaxis
     Dosage: 100 MG, QD
     Route: 048
     Dates: start: 20200728, end: 20210108
  33. ASPIRIN [Concomitant]
     Active Substance: ASPIRIN
     Indication: Thrombosis
  34. CAFSOL [Concomitant]
     Indication: Prophylaxis
     Dosage: 500 ML, QD
     Route: 042
     Dates: start: 20201229, end: 20210101
  35. CAFSOL [Concomitant]
     Indication: Decreased appetite
     Dosage: 500 ML, ONE TIME
     Route: 042
     Dates: start: 20210122, end: 20210122
  36. CAFSOL [Concomitant]
     Dosage: 500 ML, PRN
     Route: 042
     Dates: start: 20210226
  37. CAFSOL [Concomitant]
     Dosage: 500 ML, QD
     Route: 042
     Dates: start: 20210226, end: 20210604
  38. CAFSOL [Concomitant]
     Dosage: 500 ML, PRN
     Route: 042
     Dates: start: 20210626, end: 20210706
  39. CALCIO [Concomitant]
     Indication: Osteoporosis
     Dosage: 1 DF, QD
     Route: 048
     Dates: start: 20210204, end: 20211026
  40. BISOPROLOL FUMARATE [Concomitant]
     Active Substance: BISOPROLOL FUMARATE
     Indication: Atrial fibrillation
     Dosage: 2.5 MG, QD
     Route: 048
     Dates: start: 20210221, end: 20210403
  41. PROPACETAMOL HYDROCHLORIDE [Concomitant]
     Active Substance: PROPACETAMOL HYDROCHLORIDE
     Indication: Pyrexia
     Dosage: 1 G, QD (ROUTE:PRN)
     Dates: start: 20210927, end: 20211007
  42. PROPACETAMOL HYDROCHLORIDE [Concomitant]
     Active Substance: PROPACETAMOL HYDROCHLORIDE
     Dosage: 1 G, QD (ROUTE:PRN)
     Dates: start: 20211025, end: 20211108
  43. DICAMAX [Concomitant]
     Indication: Osteoporosis
     Dosage: 1 TABLET, QD
     Route: 048
     Dates: start: 20200908, end: 20210117
  44. DICAMAX [Concomitant]
     Dosage: 1 TABLET, QD
     Route: 048
     Dates: start: 20211027
  45. DIFLUCAN [Concomitant]
     Active Substance: FLUCONAZOLE
     Indication: Antibiotic prophylaxis
     Dosage: 100 MG, QD
     Route: 048
     Dates: start: 20210107, end: 20210218
  46. DIFLUCAN [Concomitant]
     Active Substance: FLUCONAZOLE
     Dosage: 100 MG, QD
     Route: 048
     Dates: start: 20210115
  47. DIFLUCAN [Concomitant]
     Active Substance: FLUCONAZOLE
     Dosage: 50 MG, QD
     Route: 048
     Dates: start: 20210219, end: 20210610
  48. EPILATAM [Concomitant]
     Indication: Essential tremor
     Dosage: 500 MG, BID
     Route: 048
     Dates: start: 20200805, end: 20210719
  49. GASTIIN CR [Concomitant]
     Indication: Prophylaxis
     Dosage: 1 DF, QD
     Route: 048
     Dates: start: 20201120, end: 20210823
  50. GASTIIN CR [Concomitant]
     Indication: Gastric ulcer
  51. HARNAL [Concomitant]
     Active Substance: TAMSULOSIN HYDROCHLORIDE
     Indication: Urinary tract obstruction
     Dosage: 1 DF, PRN
     Route: 048
     Dates: start: 20210302, end: 20210303
  52. HARNAL [Concomitant]
     Active Substance: TAMSULOSIN HYDROCHLORIDE
     Dosage: 2 TABLETS QD
     Route: 048
     Dates: start: 20210607
  53. PROPRANOLOL HYDROCHLORIDE [Concomitant]
     Active Substance: PROPRANOLOL HYDROCHLORIDE
     Indication: Essential tremor
     Dosage: 10 MG, BID
     Route: 048
     Dates: start: 20200921, end: 20201022
  54. INVANZ [Concomitant]
     Active Substance: ERTAPENEM SODIUM
     Indication: Urinary tract infection
     Dosage: 1 G, QD
     Route: 042
     Dates: start: 20211001, end: 20211007
  55. INVANZ [Concomitant]
     Active Substance: ERTAPENEM SODIUM
     Indication: Pyrexia
     Dosage: 1 G, QD
     Route: 042
     Dates: start: 20211025, end: 20211030
  56. KEROMIN [Concomitant]
     Indication: Pain in extremity
     Dosage: 30 MG, QD (END DATE: 01-SEP-2021 00:00)
     Route: 042
     Dates: start: 20210929
  57. LIPITOR [Concomitant]
     Active Substance: ATORVASTATIN CALCIUM
     Indication: Prophylaxis
     Dosage: 10 MG, QD
     Route: 048
     Dates: start: 20200731
  58. LIV-GAMMA [Concomitant]
     Indication: Septic shock
     Dosage: 20 G, QD
     Route: 042
     Dates: start: 20210117, end: 20210119
  59. METOCLOPRAMIDE HYDROCHLORIDE [Concomitant]
     Active Substance: METOCLOPRAMIDE HYDROCHLORIDE
     Indication: Prophylaxis of nausea and vomiting
     Dosage: 10 MG, QD
     Route: 042
     Dates: start: 20211027, end: 20211103
  60. MAXIPIME [Concomitant]
     Active Substance: CEFEPIME HYDROCHLORIDE
     Indication: Urinary tract infection
     Dosage: 2 G, BID
     Route: 042
     Dates: start: 20210927, end: 20211001
  61. MEDILAC DS [Concomitant]
     Indication: Prophylaxis against diarrhoea
     Dosage: 1 DF, TID
     Route: 048
     Dates: start: 20201204
  62. MEGACE F [Concomitant]
     Indication: Prophylaxis
     Dosage: 1 DF (PACK), QD
     Route: 048
     Dates: start: 20201214
  63. MEGACE F [Concomitant]
     Dosage: 1 DF (PACK), QD
     Route: 048
     Dates: start: 20210222, end: 20210726
  64. MEGACE F [Concomitant]
     Dosage: 1 DOSAGE FORM (PACK)
     Route: 048
     Dates: start: 20211002, end: 20211026
  65. MUCOPECT [Concomitant]
     Indication: Productive cough
     Dosage: 1 DF (TABLET), TID
     Route: 048
     Dates: start: 20210930
  66. LENOGRASTIM [Concomitant]
     Active Substance: LENOGRASTIM
     Indication: Neutropenia
     Dosage: 250 MICROGRAM, QD
     Route: 058
     Dates: start: 20210929, end: 20210929
  67. NORPIN [Concomitant]
     Indication: Hypotension
     Dosage: 12 ML, ONETIME DOSE/REGIMEN ONLY INDICATED FOR HYPOTENSION AND SEPTIC SHOCK
     Route: 042
     Dates: start: 20210117, end: 20210117
  68. NORPIN [Concomitant]
     Indication: Septic shock
  69. OMAPONE PERI [Concomitant]
     Indication: Prophylaxis
     Dosage: 500 ML, QD
     Route: 042
     Dates: start: 20211026, end: 20211027
  70. PAMIDRONATE DISODIUM [Concomitant]
     Active Substance: PAMIDRONATE DISODIUM
     Indication: Prophylaxis
     Dosage: 500 ML, ONE TIME
     Route: 042
     Dates: start: 20210517, end: 20210517
  71. PAMIDRONATE DISODIUM [Concomitant]
     Active Substance: PAMIDRONATE DISODIUM
     Indication: Decreased appetite
     Dosage: 500 ML, ONE TIME
     Route: 042
     Dates: start: 20210605, end: 20210613
  72. PAMIDRONATE DISODIUM [Concomitant]
     Active Substance: PAMIDRONATE DISODIUM
     Dosage: 500 ML, QD
     Route: 042
     Dates: start: 20210624, end: 20210624
  73. PANTOPRAZOLE SODIUM [Concomitant]
     Active Substance: PANTOPRAZOLE SODIUM
     Indication: Prophylaxis
     Dosage: 1 DF, QD
     Route: 048
     Dates: start: 20200829
  74. PANTOPRAZOLE SODIUM [Concomitant]
     Active Substance: PANTOPRAZOLE SODIUM
     Indication: Gastric ulcer
     Dosage: 1 DF, QD
     Route: 048
     Dates: start: 20211025
  75. CARBIDOPA\LEVODOPA [Concomitant]
     Active Substance: CARBIDOPA\LEVODOPA
     Indication: Essential tremor
     Dosage: 150 MG, TID
     Route: 048
     Dates: start: 20201021, end: 20210322
  76. CARBIDOPA\LEVODOPA [Concomitant]
     Active Substance: CARBIDOPA\LEVODOPA
     Dosage: 200 MG, BID
     Route: 048
     Dates: start: 20210322
  77. CARBIDOPA\LEVODOPA [Concomitant]
     Active Substance: CARBIDOPA\LEVODOPA
     Dosage: 200 MG, BID
     Route: 048
     Dates: start: 20210323
  78. CARBIDOPA\LEVODOPA [Concomitant]
     Active Substance: CARBIDOPA\LEVODOPA
     Dosage: 50 MG, BID
     Route: 048
     Dates: start: 20210914
  79. PMS NYSTATIN [Concomitant]
     Indication: Prophylaxis
     Dosage: 5 ML, TID
     Route: 048
     Dates: start: 20210402, end: 20210724
  80. PMS NYSTATIN [Concomitant]
     Indication: Stomatitis
  81. PRIMIDONE [Concomitant]
     Active Substance: PRIMIDONE
     Indication: Essential tremor
     Dosage: 562.5 MG, BID
     Route: 048
     Dates: start: 20210505, end: 20210719
  82. PRIMIDONE [Concomitant]
     Active Substance: PRIMIDONE
     Dosage: 625 MG, QD
     Route: 048
     Dates: start: 20210426
  83. PRIMIDONE [Concomitant]
     Active Substance: PRIMIDONE
     Dosage: 500 MG, QD
     Route: 048
     Dates: start: 20210720
  84. PRIMIDONE [Concomitant]
     Active Substance: PRIMIDONE
     Dosage: 625 MG, QD
     Route: 048
     Dates: start: 20210720
  85. RISELTON [Concomitant]
     Indication: Antibiotic prophylaxis
     Dosage: 4.6 MG, EVERY 24 HOURS; ROUTE PATCH
     Dates: start: 20201208
  86. SULFAMETHOXAZOLE\TRIMETHOPRIM [Concomitant]
     Active Substance: SULFAMETHOXAZOLE\TRIMETHOPRIM
     Indication: Antibiotic prophylaxis
     Dosage: 480 MG, QD
     Route: 048
     Dates: start: 20210107, end: 20210610
  87. SULFAMETHOXAZOLE\TRIMETHOPRIM [Concomitant]
     Active Substance: SULFAMETHOXAZOLE\TRIMETHOPRIM
     Dosage: 480 MG, QD
     Route: 048
     Dates: start: 20210115
  88. PREDNISOLONE [Concomitant]
     Active Substance: PREDNISOLONE
     Indication: Adrenal insufficiency
     Dosage: 5 MG, QD
     Route: 048
     Dates: start: 20200907
  89. PILSICAINIDE HYDROCHLORIDE [Concomitant]
     Active Substance: PILSICAINIDE HYDROCHLORIDE
     Indication: Atrial fibrillation
     Dosage: 50 MG, BID
     Route: 048
     Dates: start: 20210221
  90. SYNATURA [Concomitant]
     Indication: Productive cough
     Dosage: 15 ML, TID
     Route: 048
     Dates: start: 20210930, end: 20211026
  91. TARGOCID [Concomitant]
     Active Substance: TEICOPLANIN
     Indication: Clostridium difficile colitis
     Dosage: 340 MG, BID
     Route: 042
     Dates: start: 20210116, end: 20210117
  92. TARGOCID [Concomitant]
     Active Substance: TEICOPLANIN
     Indication: Urinary tract infection
     Dosage: 400 MG, EVERY OTHER DAY
     Route: 042
     Dates: start: 20210119, end: 20210123
  93. TARGOCID [Concomitant]
     Active Substance: TEICOPLANIN
     Dosage: 400 MG, BID
     Route: 042
     Dates: start: 20210928, end: 20210929
  94. TARGOCID [Concomitant]
     Active Substance: TEICOPLANIN
     Dosage: 400 MG, QOD
     Route: 042
     Dates: start: 20211001, end: 20211007
  95. SILODOSIN [Concomitant]
     Active Substance: SILODOSIN
     Indication: Urinary tract obstruction
     Dosage: 8 MG, QD
     Route: 048
     Dates: start: 20210226
  96. TIROPRAMIDE [Concomitant]
     Active Substance: TIROPRAMIDE
     Indication: Prophylaxis
     Dosage: 1 DOSAGE FORM (TABLET)
     Route: 048
     Dates: start: 20211027, end: 20211101
  97. TRAMADOL HYDROCHLORIDE [Concomitant]
     Active Substance: TRAMADOL HYDROCHLORIDE
     Indication: Pain in extremity
     Dosage: 50 MG, QD
     Route: 042
     Dates: start: 20210927, end: 20211007
  98. TRAMADOL HYDROCHLORIDE [Concomitant]
     Active Substance: TRAMADOL HYDROCHLORIDE
     Dosage: 50 MG, QD
     Route: 042
     Dates: start: 20211025
  99. VANCOZIN [Concomitant]
     Indication: Pseudomembranous colitis
     Dosage: 125 MG, QID
     Route: 048
     Dates: start: 20201229, end: 20210107
  100. VANCOZIN [Concomitant]
     Indication: Clostridium difficile colitis
     Dosage: 125 MG, QID
     Route: 048
     Dates: start: 20210116
  101. VANCOZIN [Concomitant]
     Indication: Pyrexia
     Dosage: 125 MG, QID
     Route: 048
     Dates: start: 20210929, end: 20211007
  102. VANCOZIN [Concomitant]
     Dosage: 1 CAP, QID
     Route: 048
     Dates: start: 20211026, end: 20211108

REACTIONS (11)
  - Febrile neutropenia [Recovered/Resolved]
  - Sepsis [Recovered/Resolved]
  - Febrile neutropenia [Recovered/Resolved]
  - Urinary tract infection [Recovered/Resolved]
  - Mental status changes [Recovered/Resolved]
  - Pyrexia [Not Recovered/Not Resolved]
  - Productive cough [Recovered/Resolved]
  - Clostridium difficile colitis [Recovered/Resolved]
  - Urinary tract infection [Recovered/Resolved]
  - Overdose [Unknown]
  - Therapy partial responder [Unknown]

NARRATIVE: CASE EVENT DATE: 20210115
